FAERS Safety Report 4617167-2 (Version None)
Quarter: 2005Q1

REPORT INFORMATION
  Report Type: 
  Country: None (occurrence: None)
  Receive Date: 20050323
  Receipt Date: 20050128
  Transmission Date: 20050727
  Serious: Yes (Death, Hospitalization)
  Sender: FDA-Public Use
  Company Number: JP-GLAXOSMITHKLINE-B0369322A

PATIENT
  Age: 63 Year
  Sex: Female
  Weight: 42 kg

DRUGS (4)
  1. ZOVIRAX [Suspect]
     Indication: HERPES ZOSTER
     Dosage: 250MG PER DAY
     Route: 042
     Dates: start: 20050126, end: 20050130
  2. SOSEGON [Concomitant]
     Indication: CANCER PAIN
     Dosage: 24MG PER DAY
     Route: 042
     Dates: start: 20050119, end: 20050130
  3. CYLOCIDE [Concomitant]
     Dosage: 8MG PER DAY
     Route: 042
     Dates: start: 20050120, end: 20050124
  4. MORPHINE HCL ELIXIR [Concomitant]
     Indication: CANCER PAIN
     Dosage: 20MG PER DAY
     Route: 042
     Dates: start: 20050131, end: 20050201

REACTIONS (9)
  - DELIRIUM [None]
  - DEPRESSED LEVEL OF CONSCIOUSNESS [None]
  - EXCITABILITY [None]
  - HYPOCALCAEMIA [None]
  - INSOMNIA [None]
  - JAUNDICE [None]
  - PAIN [None]
  - RENAL FAILURE [None]
  - TREMOR [None]
